FAERS Safety Report 6501544-9 (Version None)
Quarter: 2009Q4

REPORT INFORMATION
  Report Type: 
  Country: None (occurrence: None)
  Receive Date: 20091216
  Receipt Date: 20091209
  Transmission Date: 20100525
  Serious: Yes (Hospitalization)
  Sender: FDA-Public Use
  Company Number: B0613154A

PATIENT
  Sex: Male

DRUGS (3)
  1. ZINNAT INJECTABLE [Suspect]
     Indication: PROPHYLAXIS
     Dosage: 750MG FOUR TIMES PER DAY
     Route: 042
     Dates: start: 20090921, end: 20090923
  2. PERFALGAN [Suspect]
     Indication: PAIN
     Dosage: 2G PER DAY
     Route: 042
     Dates: start: 20090921, end: 20090922
  3. KETOPROFEN [Suspect]
     Indication: PAIN
     Dosage: 100MG PER DAY
     Route: 042
     Dates: start: 20090921, end: 20090922

REACTIONS (7)
  - BLOOD BILIRUBIN INCREASED [None]
  - BLOOD CHOLESTEROL DECREASED [None]
  - GAMMA-GLUTAMYLTRANSFERASE INCREASED [None]
  - JAUNDICE [None]
  - PROTEIN C INCREASED [None]
  - PROTEIN TOTAL DECREASED [None]
  - TRANSAMINASES INCREASED [None]
